FAERS Safety Report 25219436 (Version 2)
Quarter: 2025Q2

REPORT INFORMATION
  Report Type: Spontaneous
  Country: US (occurrence: US)
  Receive Date: 20250421
  Receipt Date: 20250515
  Transmission Date: 20250716
  Serious: No
  Sender: MYLAN
  Company Number: US-MYLANLABS-2025M1031214

PATIENT
  Age: 86 Year
  Sex: Female

DRUGS (4)
  1. GABAPENTIN [Suspect]
     Active Substance: GABAPENTIN
     Indication: Product used for unknown indication
     Dosage: 2 DOSAGE FORM, PM (NIGHTLY)
     Dates: start: 20250106
  2. GABAPENTIN [Suspect]
     Active Substance: GABAPENTIN
     Dosage: 2 DOSAGE FORM, PM (NIGHTLY)
     Route: 048
     Dates: start: 20250106
  3. GABAPENTIN [Suspect]
     Active Substance: GABAPENTIN
     Dosage: 2 DOSAGE FORM, PM (NIGHTLY)
     Route: 048
     Dates: start: 20250106
  4. GABAPENTIN [Suspect]
     Active Substance: GABAPENTIN
     Dosage: 2 DOSAGE FORM, PM (NIGHTLY)
     Dates: start: 20250106

REACTIONS (1)
  - No adverse event [Unknown]
